FAERS Safety Report 6931081-9 (Version None)
Quarter: 2010Q3

REPORT INFORMATION
  Report Type: 
  Country: None (occurrence: None)
  Receive Date: 20100818
  Receipt Date: 20100804
  Transmission Date: 20110219
  Serious: Yes (Hospitalization, Other)
  Sender: FDA-Public Use
  Company Number: AT-ABBOTT-09P-009-0582933-00

PATIENT
  Sex: Female
  Weight: 40 kg

DRUGS (10)
  1. HUMIRA [Suspect]
     Indication: CROHN'S DISEASE
     Route: 058
     Dates: start: 20080925
  2. HUMIRA [Suspect]
     Dates: start: 20090520
  3. YOMOGI [Concomitant]
     Indication: GASTROINTESTINAL MUCOSAL DISORDER
     Dates: start: 20081201, end: 20090225
  4. APREDNISLON [Concomitant]
     Indication: CROHN'S DISEASE
     Dates: start: 20080912, end: 20091002
  5. APREDNISLON [Concomitant]
     Dates: start: 20091218
  6. APREDNISLON [Concomitant]
     Dates: start: 20091218
  7. PENTASA [Concomitant]
     Indication: CROHN'S DISEASE
     Dates: start: 20030701, end: 20090902
  8. MUTAFLOR [Concomitant]
     Indication: GASTROINTESTINAL MUCOSAL DISORDER
     Dosage: 2-3 CAPSULES ONCE DAILY
     Dates: start: 20081201, end: 20090203
  9. ACLASTA [Concomitant]
     Indication: OSTEOPOROSIS
     Dosage: ONLY ONCE
     Dates: start: 20091029, end: 20091029
  10. MOTRIN [Concomitant]
     Dates: start: 20090422

REACTIONS (4)
  - COLON CANCER [None]
  - CROHN'S DISEASE [None]
  - ILEUS [None]
  - MEGACOLON [None]
